FAERS Safety Report 8079342-7 (Version None)
Quarter: 2012Q1

REPORT INFORMATION
  Report Type: 
  Country: None (occurrence: None)
  Receive Date: 20120128
  Receipt Date: 20110823
  Transmission Date: 20120608
  Serious: No
  Sender: FDA-Public Use
  Company Number: US-ABBOTT-11P-163-0848548-00

PATIENT
  Age: 50 Year
  Sex: Female

DRUGS (2)
  1. HUMIRA [Suspect]
     Indication: PSORIASIS
     Dates: start: 20090801
  2. EXCEDRIN WASH [Concomitant]
     Indication: PSORIASIS
     Dosage: BATHS IN THE AM AND 2 BATHS IN THE PM
     Dates: start: 20070101

REACTIONS (5)
  - PSORIASIS [None]
  - GLUCOSE TOLERANCE IMPAIRED [None]
  - WEIGHT LOSS POOR [None]
  - WEIGHT INCREASED [None]
  - HYPERTENSION [None]
